FAERS Safety Report 7205430-0 (Version None)
Quarter: 2010Q4

REPORT INFORMATION
  Report Type: 
  Country: None (occurrence: None)
  Receive Date: 20101231
  Receipt Date: 20101220
  Transmission Date: 20110411
  Serious: Yes (Other)
  Sender: FDA-Public Use
  Company Number: PHHY2010FR87251

PATIENT
  Sex: Female

DRUGS (8)
  1. AFINITOR [Suspect]
     Indication: RENAL CELL CARCINOMA
     Dosage: 1 DF, QD
     Route: 048
     Dates: start: 20100801, end: 20101125
  2. LEVOTHYROX [Suspect]
     Dosage: UNK
     Route: 048
  3. ESOMEPRAZOLE [Suspect]
     Dosage: UNK
     Dates: start: 20100901
  4. FOSAMAX [Suspect]
     Dosage: UNK
     Route: 048
  5. CLARITIN [Suspect]
     Indication: RASH
     Dosage: UNK
     Dates: start: 20100929
  6. IMODIUM [Suspect]
     Dosage: UNK
     Dates: start: 20100901
  7. DEXERYL [Suspect]
     Dosage: UNK
     Route: 061
     Dates: start: 20100901
  8. ELUDRIL [Suspect]
     Dosage: UNK
     Dates: start: 20100901

REACTIONS (7)
  - ASTHENIA [None]
  - C-REACTIVE PROTEIN INCREASED [None]
  - COUGH [None]
  - DECREASED APPETITE [None]
  - LUNG DISORDER [None]
  - PYREXIA [None]
  - SYSTEMIC INFLAMMATORY RESPONSE SYNDROME [None]
